FAERS Safety Report 10047254 (Version 1)
Quarter: 2014Q1

REPORT INFORMATION
  Report Type: Spontaneous
  Country: US (occurrence: US)
  Receive Date: 20140331
  Receipt Date: 20140331
  Transmission Date: 20141002
  Serious: No
  Sender: FDA-Public Use
  Company Number: US-MYLANLABS-2013S1025023

PATIENT
  Sex: Female

DRUGS (4)
  1. FENTANYL TRANSDERMAL SYSTEM [Suspect]
     Indication: CANCER PAIN
     Dosage: Q3D
     Route: 062
     Dates: start: 20131028
  2. TRAMADOL [Concomitant]
     Indication: CANCER PAIN
     Route: 048
  3. ATIVAN [Concomitant]
     Indication: ANXIETY
     Route: 048
  4. XELODA [Concomitant]
     Indication: NEOPLASM MALIGNANT
     Route: 048

REACTIONS (2)
  - Panic attack [Recovered/Resolved]
  - Fatigue [Not Recovered/Not Resolved]
